FAERS Safety Report 7098096-4 (Version None)
Quarter: 2010Q4

REPORT INFORMATION
  Report Type: 
  Country: None (occurrence: None)
  Receive Date: 20101112
  Receipt Date: 20101103
  Transmission Date: 20110411
  Serious: Yes (Hospitalization)
  Sender: FDA-Public Use
  Company Number: IT-ASTRAZENECA-2010SE50790

PATIENT
  Age: 28239 Day
  Sex: Female

DRUGS (7)
  1. MEPRAL [Suspect]
     Route: 048
     Dates: start: 20100520, end: 20100710
  2. ASPIRIN [Suspect]
     Indication: HYPERTENSIVE HEART DISEASE
     Route: 048
     Dates: start: 20100520, end: 20100710
  3. COAPROVEL [Suspect]
     Indication: HYPERTENSIVE HEART DISEASE
     Dosage: 300+12.5 MG DAILY
     Route: 048
     Dates: start: 20100520, end: 20100710
  4. LANOXIN [Concomitant]
     Route: 048
  5. ESTO [Concomitant]
     Route: 048
     Dates: start: 20100520, end: 20100710
  6. LORAZEPAM [Concomitant]
     Route: 048
  7. DEPAKENE [Concomitant]
     Route: 048
     Dates: start: 20100520, end: 20100709

REACTIONS (2)
  - HYPERSENSITIVITY [None]
  - HYPERTENSIVE HEART DISEASE [None]
